FAERS Safety Report 7556733-1 (Version None)
Quarter: 2011Q2

REPORT INFORMATION
  Report Type: 
  Country: None (occurrence: None)
  Receive Date: 20110616
  Receipt Date: 20110616
  Transmission Date: 20111010
  Serious: Yes (Hospitalization)
  Sender: FDA-Public Use
  Company Number: None

PATIENT
  Sex: Female
  Weight: 61.6 kg

DRUGS (7)
  1. LOVENOX [Concomitant]
  2. RAD001 (EVEROLIMUS) [Suspect]
     Indication: COLORECTAL CANCER
     Dosage: 10 MG PO QD
     Route: 048
     Dates: start: 20110318, end: 20110613
  3. TYLENOL-500 [Concomitant]
  4. AV-951 (TIVOZANIB) [Suspect]
     Indication: COLORECTAL CANCER
     Dosage: 1 MG PO QD
     Route: 048
     Dates: start: 20110318, end: 20110613
  5. AMLODIPINE [Concomitant]
  6. POTASSIUM CHLORIDE [Concomitant]
  7. OMEGA 3 FATTY ACIDS [Concomitant]

REACTIONS (2)
  - BREAST PAIN [None]
  - PYREXIA [None]
